FAERS Safety Report 18980287 (Version 1)
Quarter: 2021Q1

REPORT INFORMATION
  Report Type: Spontaneous
  Country: IR (occurrence: IR)
  Receive Date: 20210308
  Receipt Date: 20210308
  Transmission Date: 20210420
  Serious: Yes (Other)
  Sender: FDA-Public Use
  Company Number: IR-MYLANLABS-2021M1014266

PATIENT
  Age: 58 Year
  Sex: Female

DRUGS (8)
  1. METHOTREXATE. [Suspect]
     Active Substance: METHOTREXATE
     Indication: PALMOPLANTAR KERATODERMA
     Dosage: 7.5 MILLIGRAM, QW
     Route: 065
  2. METHOTREXATE. [Suspect]
     Active Substance: METHOTREXATE
     Indication: PEMPHIGOID
  3. CLOBETASOL [Suspect]
     Active Substance: CLOBETASOL
     Indication: PALMOPLANTAR KERATODERMA
     Dosage: 45 GRAM, QD
     Route: 061
  4. PREDNISOLONE. [Suspect]
     Active Substance: PREDNISOLONE
     Indication: PEMPHIGOID
     Dosage: LESS THAN 10 MG/DAY
     Route: 065
  5. DAPSONE. [Suspect]
     Active Substance: DAPSONE
     Indication: PALMOPLANTAR KERATODERMA
     Dosage: 50 MILLIGRAM, QD
     Route: 065
  6. PREDNISOLONE. [Suspect]
     Active Substance: PREDNISOLONE
     Indication: PALMOPLANTAR KERATODERMA
     Dosage: 70 MILLIGRAM, QD
     Route: 065
  7. DAPSONE. [Suspect]
     Active Substance: DAPSONE
     Indication: PEMPHIGOID
  8. CLOBETASOL [Suspect]
     Active Substance: CLOBETASOL
     Indication: PEMPHIGOID

REACTIONS (1)
  - Treatment failure [Unknown]
